FAERS Safety Report 7723913-1 (Version None)
Quarter: 2011Q3

REPORT INFORMATION
  Report Type: 
  Country: None (occurrence: None)
  Receive Date: 20110829
  Receipt Date: 20110817
  Transmission Date: 20111222
  Serious: Yes (Hospitalization, Other)
  Sender: FDA-Public Use
  Company Number: JPI-P-015354

PATIENT
  Age: 44 Year
  Sex: Female
  Weight: 90.7194 kg

DRUGS (11)
  1. XYREM [Suspect]
     Indication: NARCOLEPSY
     Dosage: SEE IMAGE: ORAL
     Dates: start: 20040504
  2. XYREM [Suspect]
     Indication: NARCOLEPSY
     Dosage: SEE IMAGE: ORAL
     Dates: start: 20090930, end: 20110701
  3. XYREM [Suspect]
     Indication: NARCOLEPSY
     Dosage: SEE IMAGE: ORAL
     Dates: start: 20110101
  4. FLAVOCOXID [Concomitant]
  5. TRAMADOL HYDROCHLORIDE [Concomitant]
  6. NAPROXEN [Concomitant]
  7. ETHINYL ESTRADIOL AND NORETHINDRONE [Suspect]
     Indication: CONTRACEPTION
     Dosage: 1 DOSAGE FORMS (1 DOSAGE FORMS, 1 IN 1 D), ORAL
     Route: 048
     Dates: start: 19950101, end: 20110201
  8. ARMODAFINIL [Concomitant]
  9. LEVOCETIRIZINE DIHYDROCHLORIDE [Concomitant]
  10. LEVALBUTEROL HCL [Concomitant]
  11. CYCLOBENZAPRINE [Concomitant]

REACTIONS (6)
  - POST PROCEDURAL HAEMATOMA [None]
  - MENSTRUATION IRREGULAR [None]
  - UTERINE CYST [None]
  - UTERINE LEIOMYOMA [None]
  - METRORRHAGIA [None]
  - BACK PAIN [None]
